FAERS Safety Report 8858776 (Version 1)
Quarter: 2012Q4

REPORT INFORMATION
  Report Type: Spontaneous
  Country: US (occurrence: None)
  Receive Date: 20121023
  Receipt Date: 20121023
  Transmission Date: 20130627
  Serious: No
  Sender: FDA-Public Use
  Company Number: None

PATIENT
  Age: 60 Year
  Sex: Male
  Weight: 105.9 kg

DRUGS (2)
  1. PRASUGREL [Suspect]
     Indication: CORONARY STENT INSERTION
     Route: 048
     Dates: start: 20121016, end: 20121018
  2. IODIXANOL [Suspect]
     Route: 042
     Dates: start: 20121016, end: 20121016

REACTIONS (1)
  - Rash [None]
